FAERS Safety Report 16832976 (Version 2)
Quarter: 2019Q4

REPORT INFORMATION
  Report Type: Spontaneous
  Country: JP (occurrence: JP)
  Receive Date: 20190920
  Receipt Date: 20191230
  Transmission Date: 20200122
  Serious: Yes (Other)
  Sender: FDA-Public Use
  Company Number: JP-KYOWAKIRIN-2019AKK014708

PATIENT

DRUGS (211)
  1. POTELIGEO [Suspect]
     Active Substance: MOGAMULIZUMAB-KPKC
     Dosage: 50 MG, 1X/WEEK
     Route: 041
     Dates: start: 20150805, end: 20150812
  2. GRAN SYRINGE [Concomitant]
     Dosage: 300 UG
     Route: 065
     Dates: start: 20151101, end: 20151109
  3. CALONAL [Concomitant]
     Active Substance: ACETAMINOPHEN
     Dosage: 600 MG
     Route: 048
     Dates: start: 20150822, end: 20150822
  4. ADRIACIN [Concomitant]
     Active Substance: DOXORUBICIN HYDROCHLORIDE
     Dosage: 44 MG
     Route: 065
     Dates: start: 20150805, end: 20150805
  5. ADRIACIN [Concomitant]
     Active Substance: DOXORUBICIN HYDROCHLORIDE
     Dosage: 55 MG
     Route: 065
     Dates: start: 20150902, end: 20150902
  6. SODIUM CHLORIDE. [Concomitant]
     Active Substance: SODIUM CHLORIDE
     Dosage: 100 ML
     Route: 065
     Dates: start: 20150818, end: 20151023
  7. SAXIZON [Concomitant]
     Active Substance: HYDROCORTISONE SODIUM SUCCINATE
     Dosage: 100 MG
     Route: 065
     Dates: start: 20151107, end: 20151108
  8. NEUTROGIN [Concomitant]
     Active Substance: LENOGRASTIM
     Dosage: 100 UG
     Route: 065
     Dates: start: 20150806, end: 20150811
  9. NEUTROGIN [Concomitant]
     Active Substance: LENOGRASTIM
     Dosage: 100 UG
     Route: 065
     Dates: start: 20150911, end: 20150915
  10. GLUCOSE [Concomitant]
     Active Substance: DEXTROSE
     Dosage: 500 ML
     Route: 065
     Dates: start: 20150916, end: 20150916
  11. PRIMPERAN [Concomitant]
     Active Substance: METOCLOPRAMIDE HYDROCHLORIDE
     Dosage: 20 MG
     Route: 065
     Dates: start: 20150819, end: 20150819
  12. PREDONINE [PREDNISOLONE SODIUM SUCCINATE] [Concomitant]
     Active Substance: PREDNISOLONE SODIUM SUCCINATE
     Dosage: 25 MG
     Route: 065
     Dates: start: 20151124, end: 20151206
  13. MAXIPIME [Concomitant]
     Active Substance: CEFEPIME HYDROCHLORIDE
     Dosage: 2000 MG
     Route: 065
     Dates: start: 20150808, end: 20150808
  14. MEROPEN [MEROPENEM TRIHYDRATE] [Concomitant]
     Active Substance: MEROPENEM
     Dosage: 1000 MG, QID
     Route: 065
     Dates: start: 20150811, end: 20150811
  15. LASIX [Concomitant]
     Active Substance: FUROSEMIDE
     Dosage: UNK
     Route: 065
     Dates: start: 20150822, end: 20150908
  16. GRANISETRON [Concomitant]
     Active Substance: GRANISETRON
     Dosage: 3 MG
     Route: 065
     Dates: start: 20150916, end: 20150918
  17. ELNEOPA NO.1 [Concomitant]
     Active Substance: AMINO ACIDS\DEXTROSE\ELECTROLYTES NOS\MINERALS\VITAMINS
     Dosage: 1000 ML
     Route: 065
     Dates: start: 20151207, end: 20151208
  18. ACELIO [Concomitant]
     Active Substance: ACETAMINOPHEN
     Dosage: 600 MG
     Route: 065
     Dates: start: 20151101, end: 20151101
  19. GLUCOSE [Concomitant]
     Active Substance: DEXTROSE
     Dosage: 20 ML
     Route: 065
     Dates: start: 20151007, end: 20151007
  20. FLUDARA [Concomitant]
     Active Substance: FLUDARABINE PHOSPHATE
     Dosage: 34 MG
     Route: 065
     Dates: start: 20151014, end: 20151018
  21. DEXART [Concomitant]
     Active Substance: DEXAMETHASONE SODIUM PHOSPHATE
     Dosage: 1.5 DF
     Route: 065
     Dates: start: 20151017, end: 20151018
  22. MAGNESIUM SULFATE. [Concomitant]
     Active Substance: MAGNESIUM SULFATE
     Dosage: 20 ML
     Route: 065
     Dates: start: 20151029, end: 20151211
  23. FILGRASTIM BS [FILGRASTIM BIOSIMILAR 1] [Concomitant]
     Dosage: 150 UG
     Route: 065
     Dates: start: 20151031, end: 20151109
  24. INTRALIPOS [Concomitant]
     Active Substance: SOYBEAN OIL
     Dosage: 100 ML
     Route: 065
     Dates: start: 20151124, end: 20151204
  25. NOVAMIN [PROCHLORPERAZINE MALEATE] [Concomitant]
     Dosage: 5 MG, TID
     Route: 048
     Dates: start: 20150721, end: 20150821
  26. PRIMPERAN [Concomitant]
     Active Substance: METOCLOPRAMIDE HYDROCHLORIDE
     Dosage: 5 MG
     Route: 048
     Dates: start: 20150827, end: 20150827
  27. SENNOSIDE TOWA [Concomitant]
     Dosage: 24 MG
     Route: 048
     Dates: start: 20150810, end: 20150810
  28. SP [DEQUALINIUM CHLORIDE] [Concomitant]
     Dosage: UNK
     Route: 048
     Dates: start: 20151022
  29. LEVOFLOXACIN. [Concomitant]
     Active Substance: LEVOFLOXACIN
     Dosage: 500 MG, QD
     Dates: start: 20151127, end: 20151216
  30. PREDONINE [Concomitant]
     Active Substance: PREDNISOLONE
     Dosage: 10 MG, QD
     Route: 048
     Dates: start: 20151218, end: 20151225
  31. NEUTROGIN [Concomitant]
     Active Substance: LENOGRASTIM
     Dosage: 100 UG
     Route: 065
     Dates: start: 20150904, end: 20150907
  32. PRIMPERAN [Concomitant]
     Active Substance: METOCLOPRAMIDE HYDROCHLORIDE
     Dosage: 30 MG
     Route: 065
     Dates: start: 20150915, end: 20150915
  33. PREDONINE [PREDNISOLONE SODIUM SUCCINATE] [Concomitant]
     Active Substance: PREDNISOLONE SODIUM SUCCINATE
     Dosage: 60 MG
     Route: 065
     Dates: start: 20150729, end: 20150801
  34. PREDONINE [PREDNISOLONE SODIUM SUCCINATE] [Concomitant]
     Active Substance: PREDNISOLONE SODIUM SUCCINATE
     Dosage: 60 MG
     Route: 065
     Dates: start: 20150805, end: 20150805
  35. MAXIPIME [Concomitant]
     Active Substance: CEFEPIME HYDROCHLORIDE
     Dosage: 2000 MG, TID
     Route: 065
     Dates: start: 20150926, end: 20150926
  36. MAXIPIME [Concomitant]
     Active Substance: CEFEPIME HYDROCHLORIDE
     Dosage: 2000 MG, BID
     Route: 065
     Dates: start: 20150927, end: 20150929
  37. MAXIPIME [Concomitant]
     Active Substance: CEFEPIME HYDROCHLORIDE
     Dosage: 2000 MG
     Route: 065
     Dates: start: 20150930, end: 20150930
  38. LASIX [Concomitant]
     Active Substance: FUROSEMIDE
     Dosage: UNK
     Route: 065
     Dates: start: 20151014, end: 20151017
  39. GRANISETRON [Concomitant]
     Active Substance: GRANISETRON
     Dosage: 3 MG
     Route: 065
     Dates: start: 20150812, end: 20150814
  40. ELNEOPA NO.1 [Concomitant]
     Active Substance: AMINO ACIDS\DEXTROSE\ELECTROLYTES NOS\MINERALS\VITAMINS
     Dosage: 1500 ML
     Route: 065
     Dates: start: 20150804, end: 20151027
  41. RASURITEK [Concomitant]
     Active Substance: RASBURICASE
     Dosage: 7.5 MG
     Route: 065
     Dates: start: 20150728, end: 20150731
  42. HAPTOGLOBIN [Concomitant]
     Dosage: 6000 IU
     Route: 065
     Dates: start: 20151020, end: 20151020
  43. VICCLOX [ACICLOVIR] [Concomitant]
     Dosage: 250 MG, TID
     Route: 065
     Dates: start: 20151009, end: 20151124
  44. BUSCOPAN [Concomitant]
     Active Substance: BUTYLSCOPOLAMINE BROMIDE
     Dosage: 20 MG
     Route: 065
     Dates: start: 20151007, end: 20151007
  45. FILGRASTIM BS [FILGRASTIM BIOSIMILAR 1] [Concomitant]
     Dosage: 450 UG
     Route: 065
     Dates: start: 20151110, end: 20151111
  46. SOLDEM 1 [Concomitant]
     Active Substance: DEXTROSE\SODIUM CHLORIDE\SODIUM LACTATE
  47. LAC-B GRANULAR POWDER N [Concomitant]
     Dosage: 1 G, TID
     Route: 048
     Dates: start: 20150722, end: 20150728
  48. HACHIAZULE [SODIUM BICARBONATE;SODIUM GUALENATE] [Concomitant]
     Dosage: 10 G
     Route: 049
     Dates: start: 20150811, end: 20150811
  49. SENNOSIDE TOWA [Concomitant]
     Dosage: 24 MG
     Route: 048
     Dates: start: 20150802, end: 20150802
  50. WHITE PETROLATUM [Concomitant]
     Active Substance: PETROLATUM
     Dosage: UNK
     Route: 061
     Dates: start: 20150917
  51. ENDOXAN [CYCLOPHOSPHAMIDE] [Concomitant]
     Active Substance: CYCLOPHOSPHAMIDE
     Dosage: 480 MG
     Route: 065
     Dates: start: 20150902, end: 20150902
  52. SAXIZON [Concomitant]
     Active Substance: HYDROCORTISONE SODIUM SUCCINATE
     Dosage: 200 MG, 1X/WEEK
     Route: 065
     Dates: start: 20150805, end: 20150916
  53. NEUTROGIN [Concomitant]
     Active Substance: LENOGRASTIM
     Dosage: 100 UG
     Route: 065
     Dates: start: 20150815, end: 20150824
  54. PARAPLATIN [Concomitant]
     Active Substance: CARBOPLATIN
     Dosage: 360 MG
     Dates: start: 20150812, end: 20150812
  55. PRIMPERAN [Concomitant]
     Active Substance: METOCLOPRAMIDE HYDROCHLORIDE
     Dosage: 10 MG
     Route: 065
     Dates: start: 20150730, end: 20150730
  56. PREDONINE [PREDNISOLONE SODIUM SUCCINATE] [Concomitant]
     Active Substance: PREDNISOLONE SODIUM SUCCINATE
     Dosage: 50 MG
     Route: 065
     Dates: start: 20150728, end: 20150728
  57. MAXIPIME [Concomitant]
     Active Substance: CEFEPIME HYDROCHLORIDE
     Dosage: 2000 MG, BID
     Route: 065
     Dates: start: 20151007, end: 20151009
  58. LASIX [Concomitant]
     Active Substance: FUROSEMIDE
     Dosage: 20 MG
     Route: 065
     Dates: start: 20150809, end: 20150810
  59. GRANISETRON [Concomitant]
     Active Substance: GRANISETRON
     Dosage: 3 MG, 1X/WEEK
     Route: 065
     Dates: start: 20150729, end: 20150805
  60. HEPARIN NA LOCK [Concomitant]
     Active Substance: HEPARIN SODIUM
     Dosage: UNK
     Route: 065
     Dates: start: 20150804, end: 20151218
  61. PROEMEND [Concomitant]
     Active Substance: FOSAPREPITANT
     Dosage: 50 MG
     Route: 065
     Dates: start: 20150812, end: 20150812
  62. ACELIO [Concomitant]
     Active Substance: ACETAMINOPHEN
     Dosage: 1000 MG
     Route: 065
     Dates: start: 20150925, end: 20150925
  63. ACELIO [Concomitant]
     Active Substance: ACETAMINOPHEN
     Dosage: 5000 MG
     Route: 065
     Dates: start: 20150926, end: 20150926
  64. ACELIO [Concomitant]
     Active Substance: ACETAMINOPHEN
     Dosage: 1200 MG
     Route: 065
     Dates: start: 20151008, end: 20151008
  65. ACELIO [Concomitant]
     Active Substance: ACETAMINOPHEN
     Dosage: 1800 MG
     Route: 065
     Dates: start: 20151010, end: 20151013
  66. ACELIO [Concomitant]
     Active Substance: ACETAMINOPHEN
     Dosage: 1000 MG
     Route: 065
     Dates: start: 20151105, end: 20151105
  67. BENAMBAX [Concomitant]
     Active Substance: PENTAMIDINE
     Dosage: 300 MG
     Route: 065
     Dates: start: 20151126, end: 20151126
  68. CALONAL [Concomitant]
     Active Substance: ACETAMINOPHEN
     Dosage: 400 MG
     Route: 048
     Dates: start: 20150809, end: 20150810
  69. URSODEOXYCHOLIC ACID [Concomitant]
     Active Substance: URSODIOL
     Dosage: 200 MG, BID
     Route: 048
     Dates: start: 20150803, end: 20150803
  70. URSODEOXYCHOLIC ACID [Concomitant]
     Active Substance: URSODIOL
     Dosage: 100 MG
     Route: 048
     Dates: start: 20151111, end: 20151111
  71. LOPERAMIDE HYDROCHLORIDE. [Concomitant]
     Active Substance: LOPERAMIDE HYDROCHLORIDE
     Dosage: 1 MG
     Route: 048
     Dates: start: 20151114, end: 20151114
  72. MEPTIN [Concomitant]
     Active Substance: PROCATEROL HYDROCHLORIDE
     Dosage: 0.3 ML
     Dates: start: 20151125, end: 20151125
  73. VALIXA [Concomitant]
     Active Substance: VALGANCICLOVIR
     Dosage: 900 MG, BID
     Dates: start: 20151224, end: 20151225
  74. FEBURIC [Concomitant]
     Active Substance: FEBUXOSTAT
     Dosage: 20 MG, QD
     Route: 048
     Dates: start: 20151224, end: 20151225
  75. SODIUM CHLORIDE. [Concomitant]
     Active Substance: SODIUM CHLORIDE
     Dosage: 60 ML
     Route: 065
     Dates: start: 20151024, end: 20151026
  76. KCL [Concomitant]
     Active Substance: POTASSIUM CHLORIDE
     Dosage: 20 ML
     Route: 065
     Dates: start: 20150918, end: 20151027
  77. CYMERIN [Concomitant]
     Active Substance: RANIMUSTINE
     Dosage: 88 MG
     Route: 065
     Dates: start: 20150805, end: 20150805
  78. NEUTROGIN [Concomitant]
     Active Substance: LENOGRASTIM
     Dosage: 100 UG
     Route: 065
     Dates: start: 20150919, end: 20150928
  79. GLUCOSE [Concomitant]
     Active Substance: DEXTROSE
     Dosage: 250 ML
     Route: 065
     Dates: start: 20150909, end: 20150909
  80. PRIMPERAN [Concomitant]
     Active Substance: METOCLOPRAMIDE HYDROCHLORIDE
     Dosage: 10 MG
     Route: 065
     Dates: start: 20150809, end: 20150809
  81. PREDONINE [PREDNISOLONE SODIUM SUCCINATE] [Concomitant]
     Active Substance: PREDNISOLONE SODIUM SUCCINATE
     Dosage: 20 MG
     Route: 065
     Dates: start: 20150816, end: 20150816
  82. LACTEC [Concomitant]
     Active Substance: CALCIUM CHLORIDE ANHYDROUS\POTASSIUM CHLORIDE\SODIUM CHLORIDE\SODIUM LACTATE
     Dosage: 1000 ML
     Route: 065
     Dates: start: 20150728, end: 20150729
  83. LASIX [Concomitant]
     Active Substance: FUROSEMIDE
     Dosage: 40 MG
     Route: 065
     Dates: start: 20151130, end: 20151130
  84. PROEMEND [Concomitant]
     Active Substance: FOSAPREPITANT
     Dosage: 150 MG, 1X/WEEK
     Route: 065
     Dates: start: 20150902, end: 20150916
  85. ACELIO [Concomitant]
     Active Substance: ACETAMINOPHEN
     Dosage: 600 MG
     Route: 065
     Dates: start: 20151106, end: 20151106
  86. OMEPRAZOLE. [Concomitant]
     Active Substance: OMEPRAZOLE
     Dosage: 20 MG, BID
     Route: 065
     Dates: start: 20151027, end: 20151120
  87. CERCINE [Concomitant]
     Active Substance: DIAZEPAM
     Dosage: 10 MG
     Route: 065
     Dates: start: 20151018, end: 20151018
  88. MEYLON [Concomitant]
     Active Substance: SODIUM BICARBONATE
     Dosage: 20 ML
     Route: 065
     Dates: start: 20151017, end: 20151017
  89. METHOTREXATE. [Concomitant]
     Active Substance: METHOTREXATE
     Dosage: 10 MG
     Route: 065
     Dates: start: 20151023, end: 20151023
  90. TEICOPLANIN [Concomitant]
     Active Substance: TEICOPLANIN
     Dosage: 400 MG, BID
     Route: 065
     Dates: start: 20151008, end: 20151008
  91. TEICOPLANIN [Concomitant]
     Active Substance: TEICOPLANIN
     Dosage: 400 MG, BID
     Route: 065
     Dates: start: 20151106, end: 20151106
  92. DIBASIC POTASSIUM PHOSPHATE [Concomitant]
     Active Substance: POTASSIUM PHOSPHATE, DIBASIC
     Dosage: 20 ML
     Route: 065
     Dates: start: 20151109, end: 20151201
  93. POTELIGEO [Suspect]
     Active Substance: MOGAMULIZUMAB-KPKC
     Indication: ADULT T-CELL LYMPHOMA/LEUKAEMIA RECURRENT
     Dosage: 46 MG, 1X/WEEK
     Route: 041
     Dates: start: 20150812, end: 20150916
  94. GRAN SYRINGE [Concomitant]
     Dosage: 150 UG
     Route: 065
     Dates: start: 20151025, end: 20151030
  95. NEXIUM [Concomitant]
     Active Substance: ESOMEPRAZOLE MAGNESIUM
     Dosage: 20 MG, QD
     Route: 048
     Dates: start: 20151120, end: 20151225
  96. BESOFTEN [Concomitant]
     Active Substance: PENTOSAN POLYSULFATE SODIUM
     Dosage: UNK
     Route: 061
     Dates: start: 20150722
  97. PRIMPERAN [Concomitant]
     Active Substance: METOCLOPRAMIDE HYDROCHLORIDE
     Dosage: 5 MG
     Route: 048
     Dates: start: 20150829, end: 20150829
  98. HACHIAZULE [SODIUM BICARBONATE;SODIUM GUALENATE] [Concomitant]
     Dosage: 10 G
     Route: 049
     Dates: start: 20150814, end: 20150814
  99. PURIFIED WATER [Concomitant]
     Active Substance: WATER
     Dosage: 440 ML
     Route: 049
     Dates: start: 20150811, end: 20150811
  100. URSODEOXYCHOLIC ACID [Concomitant]
     Active Substance: URSODIOL
     Dosage: 100 MG, TID
     Route: 048
     Dates: start: 20150803, end: 20150826
  101. URSODEOXYCHOLIC ACID [Concomitant]
     Active Substance: URSODIOL
     Dosage: 200 MG, TID
     Route: 048
     Dates: start: 20151008, end: 20151104
  102. SODIUM PICOSULFATE [Concomitant]
     Active Substance: SODIUM PICOSULFATE
     Dosage: 1 DF
     Route: 048
     Dates: start: 20151126, end: 20151126
  103. ADRIACIN [Concomitant]
     Active Substance: DOXORUBICIN HYDROCHLORIDE
     Dosage: 40 MG
     Route: 065
     Dates: start: 20150909, end: 20150909
  104. ENDOXAN [CYCLOPHOSPHAMIDE] [Concomitant]
     Active Substance: CYCLOPHOSPHAMIDE
     Dosage: 500 MG
     Route: 065
     Dates: start: 20150729, end: 20150729
  105. SEISHOKU [Concomitant]
     Active Substance: SODIUM CHLORIDE
     Dosage: UNK
     Route: 065
     Dates: start: 20150728
  106. GLUCOSE [Concomitant]
     Active Substance: DEXTROSE
     Dosage: 500 ML
     Route: 065
     Dates: start: 20150812, end: 20150812
  107. PRIMPERAN [Concomitant]
     Active Substance: METOCLOPRAMIDE HYDROCHLORIDE
     Dosage: 10 MG
     Route: 065
     Dates: start: 20150821, end: 20150821
  108. PREDONINE [PREDNISOLONE SODIUM SUCCINATE] [Concomitant]
     Active Substance: PREDNISOLONE SODIUM SUCCINATE
     Dosage: 60 MG, 1X/WEEK
     Route: 065
     Dates: start: 20150902, end: 20150909
  109. MAXIPIME [Concomitant]
     Active Substance: CEFEPIME HYDROCHLORIDE
     Dosage: 2000 MG, BID
     Route: 065
     Dates: start: 20150809, end: 20150810
  110. MAXIPIME [Concomitant]
     Active Substance: CEFEPIME HYDROCHLORIDE
     Dosage: 2000 MG, BID
     Route: 065
     Dates: start: 20151123, end: 20151127
  111. MEROPEN [MEROPENEM TRIHYDRATE] [Concomitant]
     Active Substance: MEROPENEM
     Dosage: 1000 MG, TID
     Route: 065
     Dates: start: 20151026, end: 20151116
  112. LASIX [Concomitant]
     Active Substance: FUROSEMIDE
     Dosage: UNK
     Route: 065
     Dates: start: 20150730, end: 20150804
  113. LASIX [Concomitant]
     Active Substance: FUROSEMIDE
     Dosage: UNK
     Route: 065
     Dates: start: 20150912, end: 20150918
  114. LASIX [Concomitant]
     Active Substance: FUROSEMIDE
     Dosage: 40 MG
     Route: 065
     Dates: start: 20151207, end: 20151207
  115. GRANISETRON [Concomitant]
     Active Substance: GRANISETRON
     Dosage: 3 MG, BID
     Route: 065
     Dates: start: 20151014, end: 20151018
  116. ELNEOPA NO.1 [Concomitant]
     Active Substance: AMINO ACIDS\DEXTROSE\ELECTROLYTES NOS\MINERALS\VITAMINS
     Dosage: 1500 ML
     Dates: start: 20151204, end: 20151206
  117. ACELIO [Concomitant]
     Active Substance: ACETAMINOPHEN
     Dosage: 600 MG, 1X/WEEK
     Route: 065
     Dates: start: 20150826, end: 20150916
  118. METHOTREXATE. [Concomitant]
     Active Substance: METHOTREXATE
     Dosage: 10 MG
     Route: 065
     Dates: start: 20151026, end: 20151026
  119. MAGNESIUM SULFATE. [Concomitant]
     Active Substance: MAGNESIUM SULFATE
     Dosage: 40 ML
     Route: 065
     Dates: start: 20151028, end: 20151028
  120. MYSER [DIFLUPREDNATE] [Concomitant]
     Dosage: UNK
     Route: 061
     Dates: start: 20150722
  121. NEXIUM [Concomitant]
     Active Substance: ESOMEPRAZOLE MAGNESIUM
     Dosage: 20 MG, QD
     Route: 048
     Dates: start: 20150728, end: 20151028
  122. CALONAL [Concomitant]
     Active Substance: ACETAMINOPHEN
     Dosage: 400 MG
     Route: 048
     Dates: start: 20150730, end: 20150731
  123. CALONAL [Concomitant]
     Active Substance: ACETAMINOPHEN
     Dosage: 1200 MG
     Route: 048
     Dates: start: 20150820, end: 20150820
  124. GLYCERIN [GLYCEROL] [Concomitant]
     Dosage: 50 ML
     Route: 049
     Dates: start: 20150811, end: 20150811
  125. HALIZON [Concomitant]
     Active Substance: AMPHOTERICIN B
     Dosage: 480 ML
     Route: 049
     Dates: start: 20150815, end: 20150815
  126. URSODEOXYCHOLIC ACID [Concomitant]
     Active Substance: URSODIOL
     Dosage: 200 MG, TID
     Route: 048
     Dates: start: 20151110, end: 20151225
  127. BROMHEXINE HYDROCHLORIDE [Concomitant]
     Active Substance: BROMHEXINE HYDROCHLORIDE
     Dosage: 45 ML
     Dates: start: 20151028, end: 20151028
  128. VFEND [Concomitant]
     Active Substance: VORICONAZOLE
     Dosage: 200 MG, BID
     Route: 048
     Dates: start: 20151130, end: 20151225
  129. VALIXA [Concomitant]
     Active Substance: VALGANCICLOVIR
     Dosage: 900 MG, BID
     Dates: start: 20151215, end: 20151221
  130. PROGRAF [Concomitant]
     Active Substance: TACROLIMUS
     Dosage: 0.14 MG, BID
     Route: 048
     Dates: start: 20151221, end: 20151225
  131. ALBUMIN [Concomitant]
     Active Substance: ALBUMIN HUMAN
     Dosage: 50 ML
     Route: 042
     Dates: start: 20150731, end: 20150803
  132. ALBUMIN [Concomitant]
     Active Substance: ALBUMIN HUMAN
     Dosage: 50 ML
     Route: 042
     Dates: start: 20151026, end: 20151031
  133. ONCOVIN [Concomitant]
     Active Substance: VINCRISTINE SULFATE
     Dosage: 1.3 MG
     Route: 065
     Dates: start: 20150902, end: 20150902
  134. KCL [Concomitant]
     Active Substance: POTASSIUM CHLORIDE
     Dosage: 30 ML
     Route: 065
     Dates: start: 20151028, end: 20151124
  135. KCL [Concomitant]
     Active Substance: POTASSIUM CHLORIDE
     Dosage: 10 ML
     Route: 065
     Dates: start: 20151125, end: 20151211
  136. CYMERIN [Concomitant]
     Active Substance: RANIMUSTINE
     Dosage: 83 MG
     Route: 065
     Dates: start: 20150909, end: 20150909
  137. SOLDEM 3A [Concomitant]
     Active Substance: CARBOHYDRATES\POTASSIUM CHLORIDE\SODIUM CHLORIDE\SODIUM LACTATE
     Dosage: 1000 ML
     Route: 065
     Dates: start: 20150729, end: 20150729
  138. SOLDEM 3A [Concomitant]
     Active Substance: CARBOHYDRATES\POTASSIUM CHLORIDE\SODIUM CHLORIDE\SODIUM LACTATE
     Dosage: 500 ML
     Dates: start: 20150808, end: 20151028
  139. FUNGUARD [Concomitant]
     Active Substance: MICAFUNGIN SODIUM
     Dosage: 150 MG
     Route: 065
     Dates: start: 20150821, end: 20150901
  140. PARAPLATIN [Concomitant]
     Active Substance: CARBOPLATIN
     Dosage: 340 MG
     Route: 065
     Dates: start: 20150916, end: 20150916
  141. PREDONINE [PREDNISOLONE SODIUM SUCCINATE] [Concomitant]
     Active Substance: PREDNISOLONE SODIUM SUCCINATE
     Dosage: 40 MG
     Route: 065
     Dates: start: 20150802, end: 20150803
  142. PREDONINE [PREDNISOLONE SODIUM SUCCINATE] [Concomitant]
     Active Substance: PREDNISOLONE SODIUM SUCCINATE
     Dosage: 60 MG
     Route: 065
     Dates: start: 20150812, end: 20150814
  143. PREDONINE [PREDNISOLONE SODIUM SUCCINATE] [Concomitant]
     Active Substance: PREDNISOLONE SODIUM SUCCINATE
     Dosage: 60 MG
     Route: 065
     Dates: start: 20150916, end: 20150918
  144. PREDONINE [PREDNISOLONE SODIUM SUCCINATE] [Concomitant]
     Active Substance: PREDNISOLONE SODIUM SUCCINATE
     Dosage: 20 MG
     Route: 065
     Dates: start: 20151207, end: 20151208
  145. PREDONINE [PREDNISOLONE SODIUM SUCCINATE] [Concomitant]
     Active Substance: PREDNISOLONE SODIUM SUCCINATE
     Dosage: 10 MG
     Route: 065
     Dates: start: 20151209, end: 20151210
  146. PREDONINE [PREDNISOLONE SODIUM SUCCINATE] [Concomitant]
     Active Substance: PREDNISOLONE SODIUM SUCCINATE
     Dosage: 10 MG
     Route: 065
     Dates: start: 20151212, end: 20151218
  147. FILDESIN [Concomitant]
     Active Substance: VINDESINE SULFATE
     Dosage: 3.5 MG
     Route: 065
     Dates: start: 20150812, end: 20150812
  148. MEROPEN [MEROPENEM TRIHYDRATE] [Concomitant]
     Active Substance: MEROPENEM
     Dosage: 1000 MG, TID
     Route: 065
     Dates: start: 20150812, end: 20150820
  149. MEROPEN [MEROPENEM TRIHYDRATE] [Concomitant]
     Active Substance: MEROPENEM
     Dosage: 1000 MG, TID
     Route: 065
     Dates: start: 20151009, end: 20151016
  150. LASIX [Concomitant]
     Active Substance: FUROSEMIDE
     Dosage: 40 MG
     Route: 065
     Dates: start: 20150910, end: 20150910
  151. LASIX [Concomitant]
     Active Substance: FUROSEMIDE
     Dosage: UNK
     Route: 065
     Dates: start: 20151202, end: 20151205
  152. HEPARIN NA LOCK [Concomitant]
     Active Substance: HEPARIN SODIUM
     Dosage: 10 ML
     Route: 065
     Dates: start: 20150729, end: 20150731
  153. FINIBAX [Concomitant]
     Active Substance: DORIPENEM MONOHYDRATE
     Dosage: 500 MG, TID
     Route: 065
     Dates: start: 20150821, end: 20150826
  154. PROEMEND [Concomitant]
     Active Substance: FOSAPREPITANT
     Dosage: 150 MG
     Route: 065
     Dates: start: 20151017, end: 20151017
  155. ACELIO [Concomitant]
     Active Substance: ACETAMINOPHEN
     Dosage: 1000 MG
     Route: 065
     Dates: start: 20151007, end: 20151007
  156. METHOTREXATE. [Concomitant]
     Active Substance: METHOTREXATE
     Dosage: 15 MG
     Route: 065
     Dates: start: 20151021, end: 20151021
  157. DEXART [Concomitant]
     Active Substance: DEXAMETHASONE SODIUM PHOSPHATE
     Dosage: 1 DF
     Route: 065
     Dates: start: 20151014, end: 20151015
  158. DEXART [Concomitant]
     Active Substance: DEXAMETHASONE SODIUM PHOSPHATE
     Dosage: 0.5 DF
     Route: 065
     Dates: start: 20151019, end: 20151019
  159. TEICOPLANIN [Concomitant]
     Active Substance: TEICOPLANIN
     Dosage: 400 MG, QD
     Route: 065
     Dates: start: 20151009, end: 20151013
  160. ROPION [Concomitant]
     Active Substance: FLURBIPROFEN AXETIL
     Dosage: 50 MG
     Route: 065
     Dates: start: 20151109, end: 20151109
  161. BFLUID [Concomitant]
     Active Substance: AMINO ACIDS\DEXTROSE\ELECTROLYTES NOS\VITAMINS
     Dosage: 500 ML
     Route: 065
     Dates: start: 20151209, end: 20151211
  162. OXYCODONE [OXYCODONE HYDROCHLORIDE] [Concomitant]
     Active Substance: OXYCODONE HYDROCHLORIDE
     Dosage: 5 MG, BID
     Route: 048
     Dates: start: 20150731, end: 20150826
  163. GLYCERIN [GLYCEROL] [Concomitant]
     Dosage: 50 ML
     Route: 049
     Dates: start: 20150814, end: 20150814
  164. AZUNOL GARGLE LIQUID [Concomitant]
     Dosage: UNK
     Route: 049
     Dates: start: 20150826
  165. MAGMITT [Concomitant]
     Active Substance: MAGNESIUM OXIDE
     Dosage: 500 MG, TID
     Route: 048
     Dates: start: 20150801, end: 20150812
  166. LOPERAMIDE HYDROCHLORIDE. [Concomitant]
     Active Substance: LOPERAMIDE HYDROCHLORIDE
     Dosage: 1 MG
     Route: 048
     Dates: start: 20151022, end: 20151022
  167. ACICLOVIR [Concomitant]
     Active Substance: ACYCLOVIR
     Dosage: 200 MG, QD
     Route: 048
     Dates: start: 20151124, end: 20151225
  168. PROGRAF [Concomitant]
     Active Substance: TACROLIMUS
     Dosage: 0.25 MG, BID
     Route: 048
     Dates: start: 20151211, end: 20151215
  169. ALBUMIN [Concomitant]
     Active Substance: ALBUMIN HUMAN
     Dosage: 50 ML
     Route: 042
     Dates: start: 20151103, end: 20151105
  170. SODIUM CHLORIDE. [Concomitant]
     Active Substance: SODIUM CHLORIDE
     Dosage: 60 ML
     Route: 065
     Dates: start: 20150812, end: 20150817
  171. SODIUM CHLORIDE. [Concomitant]
     Active Substance: SODIUM CHLORIDE
     Dosage: 40 ML
     Route: 065
     Dates: start: 20151027, end: 20151031
  172. KCL [Concomitant]
     Active Substance: POTASSIUM CHLORIDE
     Dosage: 20 ML
     Route: 065
     Dates: start: 20150826, end: 20150908
  173. SAXIZON [Concomitant]
     Active Substance: HYDROCORTISONE SODIUM SUCCINATE
     Dosage: 100 MG, 1X/WEEK
     Route: 065
     Dates: start: 20151020, end: 20151027
  174. POLARAMINE [Concomitant]
     Active Substance: DEXCHLORPHENIRAMINE MALEATE
     Dosage: 5 MG
     Dates: start: 20150826, end: 20150826
  175. GLUCOSE [Concomitant]
     Active Substance: DEXTROSE
     Dosage: 250 ML
     Route: 065
     Dates: start: 20150805, end: 20150805
  176. PRIMPERAN [Concomitant]
     Active Substance: METOCLOPRAMIDE HYDROCHLORIDE
     Dosage: 10 MG
     Route: 065
     Dates: start: 20150818, end: 20150818
  177. PREDONINE [PREDNISOLONE SODIUM SUCCINATE] [Concomitant]
     Active Substance: PREDNISOLONE SODIUM SUCCINATE
     Dosage: 20 MG
     Route: 065
     Dates: start: 20150804, end: 20150804
  178. PREDONINE [PREDNISOLONE SODIUM SUCCINATE] [Concomitant]
     Active Substance: PREDNISOLONE SODIUM SUCCINATE
     Dosage: 40 MG
     Route: 065
     Dates: start: 20150815, end: 20150815
  179. PREDONINE [PREDNISOLONE SODIUM SUCCINATE] [Concomitant]
     Active Substance: PREDNISOLONE SODIUM SUCCINATE
     Dosage: 5 MG
     Route: 065
     Dates: start: 20151211, end: 20151211
  180. MEROPEN [MEROPENEM TRIHYDRATE] [Concomitant]
     Active Substance: MEROPENEM
     Dosage: 1000 MG
     Route: 065
     Dates: start: 20150810, end: 20150810
  181. LASIX [Concomitant]
     Active Substance: FUROSEMIDE
     Dosage: UNK
     Route: 065
     Dates: start: 20151019, end: 20151114
  182. LASIX [Concomitant]
     Active Substance: FUROSEMIDE
     Dosage: UNK
     Route: 065
     Dates: start: 20151126, end: 20151128
  183. GRANISETRON [Concomitant]
     Active Substance: GRANISETRON
     Dosage: 3 MG, 1X/WEEK
     Route: 065
     Dates: start: 20150902, end: 20150909
  184. ETOPOSIDE. [Concomitant]
     Active Substance: ETOPOSIDE
     Dosage: 140 MG
     Route: 065
     Dates: start: 20150812, end: 20150814
  185. ACELIO [Concomitant]
     Active Substance: ACETAMINOPHEN
     Dosage: 4000 MG
     Route: 065
     Dates: start: 20150927, end: 20151002
  186. GLYCEOL [Concomitant]
     Active Substance: GLYCERIN
     Dosage: 200 ML
     Route: 065
     Dates: start: 20151014, end: 20151015
  187. VFEND [Concomitant]
     Active Substance: VORICONAZOLE
     Dosage: 300 MG, BID
     Route: 065
     Dates: start: 20150902, end: 20150902
  188. STRONGER NEO-MINOPHAGEN C [Concomitant]
     Active Substance: AMMONIUM GLYCYRRHIZATE\CYSTEINE HYDROCHLORIDE\GLYCINE
     Dosage: 40 ML
     Route: 065
     Dates: start: 20150916, end: 20150928
  189. ELNEOPA NO.2 [Concomitant]
     Active Substance: AMINO ACIDS\DEXTROSE\ELECTROLYTES NOS\MINERALS\VITAMINS
     Dosage: 1500 ML
     Route: 065
     Dates: start: 20151028, end: 20151203
  190. PROGRAF [Concomitant]
     Active Substance: TACROLIMUS
     Dosage: UNK
     Route: 065
     Dates: start: 20151019, end: 20151211
  191. TEICOPLANIN [Concomitant]
     Active Substance: TEICOPLANIN
     Dosage: 400 MG, QD
     Route: 065
     Dates: start: 20151107, end: 20151113
  192. ROPION [Concomitant]
     Active Substance: FLURBIPROFEN AXETIL
     Dosage: UNK
     Route: 065
     Dates: start: 20151102, end: 20151107
  193. NOVAMIN [PROCHLORPERAZINE MALEATE] [Concomitant]
     Dosage: 5 MG, BID
     Route: 048
     Dates: start: 20150731, end: 20150731
  194. LOXOPROFEN EMEC [Concomitant]
     Active Substance: LOXOPROFEN
     Dosage: 60 MG
     Route: 048
     Dates: start: 20150731, end: 20150731
  195. LOXOPROFEN EMEC [Concomitant]
     Active Substance: LOXOPROFEN
     Dosage: 60 MG
     Route: 048
     Dates: start: 20150803, end: 20150803
  196. OXINORM [OXYCODONE HYDROCHLORIDE] [Concomitant]
     Active Substance: OXYCODONE HYDROCHLORIDE
     Dosage: 2.5 MG
     Route: 048
     Dates: start: 20150731, end: 20150731
  197. PURIFIED WATER [Concomitant]
     Active Substance: WATER
     Dosage: 440 ML
     Route: 049
     Dates: start: 20150814, end: 20150814
  198. HALIZON [Concomitant]
     Active Substance: AMPHOTERICIN B
     Dosage: 480 ML
     Route: 049
     Dates: start: 20150807, end: 20150807
  199. PROGRAF [Concomitant]
     Active Substance: TACROLIMUS
     Dosage: 0.16 MG, BID
     Route: 048
     Dates: start: 20151215, end: 20151220
  200. ADRIACIN [Concomitant]
     Active Substance: DOXORUBICIN HYDROCHLORIDE
     Dosage: 60 MG
     Route: 065
     Dates: start: 20150729, end: 20150729
  201. ONCOVIN [Concomitant]
     Active Substance: VINCRISTINE SULFATE
     Dosage: 1.4 MG
     Route: 065
     Dates: start: 20150729, end: 20150729
  202. PREDONINE [PREDNISOLONE SODIUM SUCCINATE] [Concomitant]
     Active Substance: PREDNISOLONE SODIUM SUCCINATE
     Dosage: 20 MG
     Route: 065
     Dates: start: 20150806, end: 20150806
  203. PREDONINE [PREDNISOLONE SODIUM SUCCINATE] [Concomitant]
     Active Substance: PREDNISOLONE SODIUM SUCCINATE
     Dosage: 10 MG
     Route: 065
     Dates: start: 20150807, end: 20150808
  204. PREDONINE [PREDNISOLONE SODIUM SUCCINATE] [Concomitant]
     Active Substance: PREDNISOLONE SODIUM SUCCINATE
     Dosage: 5 MG
     Route: 065
     Dates: start: 20150809, end: 20150809
  205. FILDESIN [Concomitant]
     Active Substance: VINDESINE SULFATE
     Dosage: 3.3 MG
     Route: 065
     Dates: start: 20150916, end: 20150916
  206. LACTEC [Concomitant]
     Active Substance: CALCIUM CHLORIDE ANHYDROUS\POTASSIUM CHLORIDE\SODIUM CHLORIDE\SODIUM LACTATE
     Dosage: 2000 ML
     Route: 065
     Dates: start: 20150730, end: 20150803
  207. LASIX [Concomitant]
     Active Substance: FUROSEMIDE
     Dosage: 20 MG
     Route: 065
     Dates: start: 20150818, end: 20150818
  208. ETOPOSIDE. [Concomitant]
     Active Substance: ETOPOSIDE
     Dosage: 130 MG
     Route: 065
     Dates: start: 20150916, end: 20150918
  209. ACELIO [Concomitant]
     Active Substance: ACETAMINOPHEN
     Dosage: 2800 MG
     Route: 065
     Dates: start: 20151009, end: 20151009
  210. VFEND [Concomitant]
     Active Substance: VORICONAZOLE
     Dosage: 180 MG, BID
     Route: 065
     Dates: start: 20150903, end: 20151130
  211. ALKERAN [Concomitant]
     Active Substance: MELPHALAN
     Dosage: 96 MG
     Route: 065
     Dates: start: 20151017, end: 20151018

REACTIONS (2)
  - Acute graft versus host disease in liver [Recovering/Resolving]
  - Acute graft versus host disease in skin [Recovering/Resolving]

NARRATIVE: CASE EVENT DATE: 20151108
